FAERS Safety Report 24227549 (Version 3)
Quarter: 2025Q1

REPORT INFORMATION
  Report Type: Spontaneous
  Country: US (occurrence: US)
  Receive Date: 20240820
  Receipt Date: 20250105
  Transmission Date: 20250409
  Serious: No
  Sender: SANOFI AVENTIS
  Company Number: US-SA-SAC20240814000528

PATIENT
  Age: 58 Year
  Sex: Female

DRUGS (1)
  1. DUPIXENT [Suspect]
     Active Substance: DUPILUMAB
     Indication: Dermatitis atopic
     Dosage: 300 MG, QOW
     Route: 058

REACTIONS (6)
  - Respiratory syncytial virus infection [Unknown]
  - Pruritus [Unknown]
  - Dermatitis atopic [Unknown]
  - Condition aggravated [Unknown]
  - Animal bite [Unknown]
  - Scratch [Unknown]

NARRATIVE: CASE EVENT DATE: 20241226
